FAERS Safety Report 4714046-7 (Version None)
Quarter: 2005Q3

REPORT INFORMATION
  Report Type: 
  Country: None (occurrence: None)
  Receive Date: 20050714
  Receipt Date: 20050412
  Transmission Date: 20060218
  Serious: Yes (Other)
  Sender: FDA-Public Use
  Company Number: FR-ABBOTT-05P-056-0297814-00

PATIENT
  Sex: Female
  Weight: 63 kg

DRUGS (7)
  1. HUMIRA [Suspect]
     Indication: POLYARTHRITIS
     Route: 058
     Dates: start: 20031216, end: 20050510
  2. PREDNISONE [Concomitant]
     Indication: POLYARTHRITIS
     Route: 048
     Dates: start: 19800101
  3. METHOTREXATE [Concomitant]
     Indication: POLYARTHRITIS
     Route: 030
     Dates: start: 20010101
  4. HYDROXYCHLOROQUINE PHOSPHATE [Concomitant]
     Indication: POLYARTHRITIS
     Route: 048
     Dates: start: 20000101
  5. PARACETAMOL CODEINE [Concomitant]
     Indication: POLYARTHRITIS
     Route: 048
     Dates: start: 20000101
  6. ASPIRIN [Concomitant]
     Indication: ERYTHEMA
     Route: 048
     Dates: start: 20040101
  7. RISEDRONIC ACID [Concomitant]
     Indication: OSTEOPOROSIS
     Route: 048
     Dates: start: 20010101

REACTIONS (2)
  - INCREASED APPETITE [None]
  - WEIGHT INCREASED [None]
